FAERS Safety Report 5735887-3 (Version None)
Quarter: 2008Q2

REPORT INFORMATION
  Report Type: 
  Country: None (occurrence: None)
  Receive Date: 20080509
  Receipt Date: 20080428
  Transmission Date: 20081010
  Serious: Yes (Other)
  Sender: FDA-Public Use
  Company Number: 2008S1007324

PATIENT
  Age: 48 Year
  Sex: Female

DRUGS (12)
  1. CLOZAPINE [Suspect]
     Indication: SCHIZOAFFECTIVE DISORDER
     Dosage: 300 MG; AT BEDTIME; ORAL
     Route: 048
     Dates: start: 20070814, end: 20080421
  2. ANTIINFECTIVES [Suspect]
     Indication: NASOPHARYNGITIS
  3. ANTIINFECTIVES [Suspect]
     Indication: URINARY TRACT INFECTION
  4. DEPAKOTE [Concomitant]
  5. SEROQUEL [Concomitant]
  6. KLONOPIN [Concomitant]
  7. COGENTIN [Concomitant]
  8. LOPRESSOR [Concomitant]
  9. AVANDIA /01445801/ [Concomitant]
  10. GLUCOPHAGE [Concomitant]
  11. VYTORIN [Concomitant]
  12. VASOTEC [Concomitant]

REACTIONS (6)
  - DRUG INTERACTION [None]
  - GRANULOCYTOPENIA [None]
  - LEUKOPENIA [None]
  - NEUTROPENIA [None]
  - UPPER RESPIRATORY TRACT INFECTION [None]
  - URINARY TRACT INFECTION [None]
